FAERS Safety Report 10412844 (Version 2)
Quarter: 2014Q3

REPORT INFORMATION
  Report Type: Spontaneous
  Country: PT (occurrence: PT)
  Receive Date: 20140827
  Receipt Date: 20140904
  Transmission Date: 20150326
  Serious: Yes (Death, Hospitalization)
  Sender: FDA-Public Use
  Company Number: PHHY2014PT103379

PATIENT
  Age: 53 Year
  Sex: Female

DRUGS (8)
  1. SERTRALINE [Concomitant]
     Active Substance: SERTRALINE HYDROCHLORIDE
  2. AMIODARONE [Suspect]
     Active Substance: AMIODARONE
     Dosage: 200 MG TWO TIMES DAILY FOR 5 DAYS PER WEEK
  3. CIPROFLOXACIN. [Suspect]
     Active Substance: CIPROFLOXACIN
     Route: 042
  4. METFORMIN W/VILDAGLIPTIN [Concomitant]
  5. VALPROIC ACID. [Concomitant]
     Active Substance: VALPROIC ACID
  6. OXYBUTYNIN [Concomitant]
     Active Substance: OXYBUTYNIN
  7. TRAZODONE [Concomitant]
     Active Substance: TRAZODONE HYDROCHLORIDE
  8. VARFINE [Concomitant]

REACTIONS (17)
  - Leukocyturia [Recovering/Resolving]
  - Death [Fatal]
  - Psychomotor hyperactivity [Recovering/Resolving]
  - Restlessness [Recovering/Resolving]
  - Escherichia test positive [Unknown]
  - Pyrexia [Recovering/Resolving]
  - Abdominal pain [Recovering/Resolving]
  - Unresponsive to stimuli [Recovering/Resolving]
  - Dehydration [Recovering/Resolving]
  - Hyperthyroidism [Recovering/Resolving]
  - Drug resistance [Unknown]
  - Asthenia [Recovering/Resolving]
  - General physical condition abnormal [Recovering/Resolving]
  - Communication disorder [Recovering/Resolving]
  - Thyrotoxic crisis [Recovering/Resolving]
  - Agitation [Recovering/Resolving]
  - Atrial fibrillation [Recovering/Resolving]
